FAERS Safety Report 7532445-5 (Version None)
Quarter: 2011Q2

REPORT INFORMATION
  Report Type: 
  Country: None (occurrence: None)
  Receive Date: 20110608
  Receipt Date: 20110526
  Transmission Date: 20111010
  Serious: Yes (Other)
  Sender: FDA-Public Use
  Company Number: US-CELGENEUS-163-21880-11053649

PATIENT
  Sex: Male

DRUGS (9)
  1. FISH OIL [Concomitant]
     Route: 065
  2. METFORMIN HCL [Concomitant]
     Route: 065
  3. ACTOS [Concomitant]
     Route: 065
  4. REVLIMID [Suspect]
     Dosage: 15 MILLIGRAM
     Route: 048
     Dates: start: 20100312
  5. PROTONIX [Concomitant]
     Route: 065
  6. VYTORIN [Concomitant]
     Route: 065
  7. BENAZEPRIL HYDROCHLORIDE [Concomitant]
     Route: 065
  8. MULTI-VITAMINS [Concomitant]
     Route: 065
  9. ASPIRIN [Concomitant]
     Route: 065

REACTIONS (3)
  - HYPERGLYCAEMIA [None]
  - HAEMATOCHEZIA [None]
  - BLOOD COUNT ABNORMAL [None]
